FAERS Safety Report 8152779-3 (Version None)
Quarter: 2012Q1

REPORT INFORMATION
  Report Type: 
  Country: None (occurrence: None)
  Receive Date: 20120221
  Receipt Date: 20120214
  Transmission Date: 20120608
  Serious: Yes (Hospitalization)
  Sender: FDA-Public Use
  Company Number: FR-AMGEN-FRACT2012002414

PATIENT
  Age: 70 Year
  Sex: Male

DRUGS (6)
  1. XGEVA [Suspect]
     Indication: METASTASES TO BONE
     Dosage: UNK UNK, Q4WK
     Route: 042
     Dates: start: 20100325
  2. OXYCONTIN [Concomitant]
     Dosage: 80 MG, BID
     Route: 048
     Dates: start: 20100107
  3. HYDROCORTISONE [Concomitant]
     Dosage: 10 MG, QD
     Route: 048
     Dates: start: 20100701
  4. NEURONTIN [Concomitant]
     Dosage: 800 MG, TID
     Route: 048
     Dates: start: 20090801
  5. OXYCODONE HCL [Concomitant]
     Dosage: 30 MG, QID
     Route: 048
     Dates: start: 20100101
  6. ABIRATERONE [Concomitant]

REACTIONS (2)
  - OEDEMA [None]
  - DYSPNOEA [None]
